FAERS Safety Report 24629620 (Version 2)
Quarter: 2025Q3

REPORT INFORMATION
  Report Type: Spontaneous
  Country: JP (occurrence: JP)
  Receive Date: 20241118
  Receipt Date: 20250810
  Transmission Date: 20251021
  Serious: Yes (Other)
  Sender: ALEXION PHARMACEUTICALS
  Company Number: JP-ASTRAZENECA-240121218_010520_P_1

PATIENT
  Age: 60 Year
  Sex: Female

DRUGS (6)
  1. FULVESTRANT [Suspect]
     Active Substance: FULVESTRANT
     Indication: Breast cancer
     Dosage: 500 MILLIGRAM, Q4W
  2. FULVESTRANT [Suspect]
     Active Substance: FULVESTRANT
  3. DENOSUMAB [Concomitant]
     Active Substance: DENOSUMAB
     Indication: Breast cancer
     Route: 065
  4. ABEMACICLIB [Concomitant]
     Active Substance: ABEMACICLIB
     Indication: Breast cancer
     Route: 065
  5. ABEMACICLIB [Concomitant]
     Active Substance: ABEMACICLIB
     Route: 065
  6. ABEMACICLIB [Concomitant]
     Active Substance: ABEMACICLIB
     Route: 065

REACTIONS (2)
  - Neutrophil count decreased [Unknown]
  - Tumour marker increased [Unknown]
